FAERS Safety Report 7973048-8 (Version None)
Quarter: 2011Q4

REPORT INFORMATION
  Report Type: 
  Country: None (occurrence: None)
  Receive Date: 20111213
  Receipt Date: 20111207
  Transmission Date: 20120403
  Serious: Yes (Other)
  Sender: FDA-Public Use
  Company Number: US-ROXANE LABORATORIES, INC.-2011-EU-00993GD

PATIENT
  Age: 7 Month
  Sex: Male

DRUGS (7)
  1. LORAZEPAM [Suspect]
     Indication: SEDATIVE THERAPY
  2. IBUPROFEN [Concomitant]
     Indication: AGITATION
  3. MORPHINE [Suspect]
     Indication: SEDATIVE THERAPY
  4. ACETAMINOPHEN W/ CODEINE [Suspect]
     Indication: AGITATION
  5. LORAZEPAM [Suspect]
     Indication: AGITATION
  6. FENTANYL [Suspect]
     Indication: SEDATIVE THERAPY
  7. MORPHINE [Suspect]
     Indication: AGITATION

REACTIONS (4)
  - DELIRIUM [None]
  - INSOMNIA [None]
  - PSYCHOMOTOR HYPERACTIVITY [None]
  - CONDITION AGGRAVATED [None]
